FAERS Safety Report 6440544-4 (Version None)
Quarter: 2009Q4

REPORT INFORMATION
  Report Type: 
  Country: None (occurrence: None)
  Receive Date: 20091113
  Receipt Date: 20091102
  Transmission Date: 20100525
  Serious: Yes (Other)
  Sender: FDA-Public Use
  Company Number: US-ELI_LILLY_AND_COMPANY-US200911000443

PATIENT
  Age: 44 Year
  Sex: Female

DRUGS (1)
  1. FORTEO [Suspect]
     Indication: OSTEOMALACIA
     Dosage: 20 UG, DAILY (1/D)
     Dates: start: 20090601

REACTIONS (8)
  - ABDOMINAL DISTENSION [None]
  - FEELING HOT [None]
  - HEART RATE INCREASED [None]
  - OFF LABEL USE [None]
  - PARAESTHESIA [None]
  - SPINAL FUSION SURGERY [None]
  - WEIGHT INCREASED [None]
  - WEIGHT LOSS POOR [None]
